FAERS Safety Report 13989340 (Version 1)
Quarter: 2017Q3

REPORT INFORMATION
  Report Type: Spontaneous
  Country: CH (occurrence: CH)
  Receive Date: 20170920
  Receipt Date: 20170920
  Transmission Date: 20171128
  Serious: Yes (Death, Life-Threatening, Hospitalization, Other)
  Sender: FDA-Public Use
  Company Number: CH-MACLEODS PHARMACEUTICALS US LTD-MAC2017005946

PATIENT

DRUGS (3)
  1. HYDROMORPHONE [Suspect]
     Active Substance: HYDROMORPHONE
     Indication: PRODUCT USED FOR UNKNOWN INDICATION
     Dosage: UNK, HANDFUL
     Route: 048
  2. TRAMADOL HYDROCHLORIDE. [Suspect]
     Active Substance: TRAMADOL HYDROCHLORIDE
     Indication: PRODUCT USED FOR UNKNOWN INDICATION
     Dosage: UNK
     Route: 048
  3. DIPHENHYDRAMINE. [Suspect]
     Active Substance: DIPHENHYDRAMINE
     Indication: PRODUCT USED FOR UNKNOWN INDICATION
     Dosage: UNK
     Route: 048

REACTIONS (20)
  - Mydriasis [Fatal]
  - Hyperkalaemia [Unknown]
  - Unresponsive to stimuli [Unknown]
  - Hepatic enzyme increased [Unknown]
  - Myocardial necrosis marker increased [Unknown]
  - Nightmare [Unknown]
  - Snoring [Unknown]
  - Brain oedema [Fatal]
  - Pupillary reflex impaired [Fatal]
  - Cardiac arrest [Recovered/Resolved]
  - Toxicity to various agents [Fatal]
  - Respiratory acidosis [Unknown]
  - Hypersomnia [Unknown]
  - Pneumonia aspiration [Fatal]
  - Visceral congestion [Fatal]
  - Renal function test abnormal [Unknown]
  - Metabolic acidosis [Unknown]
  - Pulmonary oedema [Fatal]
  - Hypoglycaemia [Unknown]
  - Respiratory arrest [Fatal]
